FAERS Safety Report 8302576-0 (Version None)
Quarter: 2012Q2

REPORT INFORMATION
  Report Type: 
  Country: None (occurrence: None)
  Receive Date: 20120405
  Receipt Date: 20120327
  Transmission Date: 20120825
  Serious: Yes (Other)
  Sender: FDA-Public Use
  Company Number: AEDEU201200122

PATIENT
  Sex: Male

DRUGS (8)
  1. GAMUNEX [Suspect]
  2. GAMUNEX [Suspect]
  3. GAMUNEX [Suspect]
  4. GAMUNEX [Suspect]
  5. GAMUNEX [Suspect]
  6. GAMUNEX [Suspect]
     Indication: PRODUCT USED FOR UNKNOWN INDICATION
     Dosage: IV
     Route: 042
  7. GAMUNEX [Suspect]
  8. GAMUNEX [Suspect]

REACTIONS (1)
  - RENAL FAILURE [None]
